FAERS Safety Report 12529315 (Version 1)
Quarter: 2016Q3

REPORT INFORMATION
  Report Type: Spontaneous
  Country: US (occurrence: US)
  Receive Date: 20160705
  Receipt Date: 20160705
  Transmission Date: 20161109
  Serious: Yes (Other)
  Sender: FDA-Public Use
  Company Number: US-ASTRAZENECA-2016SE70814

PATIENT
  Sex: Female
  Weight: 49 kg

DRUGS (38)
  1. AMLODIPINE BESILATE [Concomitant]
     Active Substance: AMLODIPINE BESYLATE
     Route: 048
  2. FOLIC ACID. [Concomitant]
     Active Substance: FOLIC ACID
     Route: 048
  3. LASIX [Concomitant]
     Active Substance: FUROSEMIDE
     Route: 048
  4. LORATADINE. [Concomitant]
     Active Substance: LORATADINE
     Route: 048
  5. MAXZIDE [Concomitant]
     Active Substance: HYDROCHLOROTHIAZIDE\TRIAMTERENE
     Route: 048
  6. MAXZIDE [Concomitant]
     Active Substance: HYDROCHLOROTHIAZIDE\TRIAMTERENE
     Route: 048
  7. MAXZIDE [Concomitant]
     Active Substance: HYDROCHLOROTHIAZIDE\TRIAMTERENE
     Route: 048
  8. SOMA [Concomitant]
     Active Substance: CARISOPRODOL
     Dosage: 350.0MG EVERY 4 - 6 HOURS
     Route: 048
  9. TRAMADOL. [Concomitant]
     Active Substance: TRAMADOL
     Dosage: 50.0MG AS REQUIRED
     Route: 048
  10. XANAX [Suspect]
     Active Substance: ALPRAZOLAM
     Dosage: 0.5MG EVERY 8 - 12 HOURS
     Route: 048
  11. BETAMETHASONE DIPROPIONATE. [Concomitant]
     Active Substance: BETAMETHASONE DIPROPIONATE
     Dosage: 0.05% APPLY BY TOPICAL ROUTE EVERY DAY A FEW DROPS TO THE AFFECTED AREA(S) AND MASSAGE LIGHTLY UN...
     Route: 061
  12. PLAQUENIL [Concomitant]
     Active Substance: HYDROXYCHLOROQUINE SULFATE
     Route: 048
  13. VENTOLIN HFA [Concomitant]
     Active Substance: ALBUTEROL SULFATE
     Dosage: 90.0UG AS REQUIRED
     Route: 048
  14. ZOMIG [Suspect]
     Active Substance: ZOLMITRIPTAN
     Route: 048
  15. ZYRTEC [Suspect]
     Active Substance: CETIRIZINE HYDROCHLORIDE
     Route: 065
  16. ALBUTEROL SULFATE. [Concomitant]
     Active Substance: ALBUTEROL SULFATE
     Dosage: 2.5 MG/3 ML (0.083 %} SOLUTION FOR NEBULIZATION
     Route: 055
  17. BUTALBITAL ACETAMINOPHEN [Concomitant]
     Dosage: 50 MG-325 MG TAKE 1 TO  2 TABLET BY ORAL ROUTE
     Route: 048
  18. CARAFATE [Concomitant]
     Active Substance: SUCRALFATE
     Route: 048
  19. VITAMIN D3 [Concomitant]
     Active Substance: CHOLECALCIFEROL
     Dosage: 2000 UNIT DAILY
     Route: 048
  20. NEXIUM [Suspect]
     Active Substance: ESOMEPRAZOLE MAGNESIUM
     Route: 048
     Dates: end: 20161205
  21. VALIUM [Concomitant]
     Active Substance: DIAZEPAM
     Dosage: 5.0MG AS REQUIRED
     Route: 048
  22. TOPROL XL [Suspect]
     Active Substance: METOPROLOL SUCCINATE
     Route: 048
  23. KLOR-CON M20 [Concomitant]
     Active Substance: POTASSIUM CHLORIDE
     Route: 048
  24. REQUIP [Concomitant]
     Active Substance: ROPINIROLE HYDROCHLORIDE
     Route: 048
  25. CALCIUM 500 [Concomitant]
     Route: 065
  26. MONTELUKAST [Concomitant]
     Active Substance: MONTELUKAST SODIUM
     Route: 048
  27. VITAMIN E400 [Concomitant]
     Dosage: TAKE ONE TABLET
     Route: 065
  28. NEURONTIN [Suspect]
     Active Substance: GABAPENTIN
     Route: 065
  29. PROTONIX [Suspect]
     Active Substance: PANTOPRAZOLE SODIUM
     Route: 048
  30. COENZYME Q10 [Concomitant]
     Active Substance: UBIDECARENONE
     Dosage: RED YEAST RICE 60 MG-600 MG CAPSULE TWO TIMES A DAY
     Route: 065
  31. NIACIN. [Concomitant]
     Active Substance: NIACIN
     Route: 048
  32. PYRIDIUM [Concomitant]
     Active Substance: PHENAZOPYRIDINE
     Route: 048
  33. RHINOCORT AQUA [Suspect]
     Active Substance: BUDESONIDE
     Dosage: 32 MCG/ACTLLATION EVERY DAY IN EACH NOSTRIL
     Route: 045
  34. CRESTOR [Suspect]
     Active Substance: ROSUVASTATIN CALCIUM
     Route: 048
  35. LYRICA [Suspect]
     Active Substance: PREGABALIN
     Route: 048
  36. BACITRACIN STERILE [Suspect]
     Active Substance: BACITRACIN
     Dosage: 500 UNIT/GRAM EYE
     Route: 065
     Dates: end: 20160512
  37. METHOTREXATE SODIUM. [Concomitant]
     Active Substance: METHOTREXATE SODIUM
     Dosage: 2.5 MG TAKE 5 TABLETS ON MONDAY ANDTHURSDAYS.
     Route: 048
  38. PREDNISONE. [Concomitant]
     Active Substance: PREDNISONE
     Route: 048

REACTIONS (16)
  - Peptic ulcer [Unknown]
  - Thinking abnormal [Unknown]
  - Gastritis [Unknown]
  - Restless legs syndrome [Unknown]
  - Rheumatoid arthritis [Unknown]
  - Vitreous floaters [Unknown]
  - Plasma cell myeloma [Unknown]
  - Amnesia [Unknown]
  - Tympanic membrane perforation [Unknown]
  - Sjogren^s syndrome [Unknown]
  - Anxiety [Unknown]
  - Insomnia [Unknown]
  - Migraine [Unknown]
  - Pain [Unknown]
  - Drug hypersensitivity [Unknown]
  - Bone lesion [Unknown]
